FAERS Safety Report 16847228 (Version 1)
Quarter: 2019Q3

REPORT INFORMATION
  Report Type: Report from Study
  Country: US (occurrence: US)
  Receive Date: 20190924
  Receipt Date: 20190924
  Transmission Date: 20191005
  Serious: Yes (Other)
  Sender: FDA-Public Use
  Company Number: PHEH2019US039182

PATIENT
  Age: 75 Year
  Sex: Female

DRUGS (1)
  1. ENTRESTO [Suspect]
     Active Substance: SACUBITRIL\VALSARTAN
     Indication: PRODUCT USED FOR UNKNOWN INDICATION
     Route: 065

REACTIONS (6)
  - Cardiac disorder [Unknown]
  - Fall [Unknown]
  - Disturbance in attention [Unknown]
  - Pain [Not Recovered/Not Resolved]
  - Vertigo [Unknown]
  - Balance disorder [Unknown]

NARRATIVE: CASE EVENT DATE: 201904
